FAERS Safety Report 7168832-7 (Version None)
Quarter: 2010Q4

REPORT INFORMATION
  Report Type: 
  Country: None (occurrence: None)
  Receive Date: 20101216
  Receipt Date: 20100209
  Transmission Date: 20110411
  Serious: Yes (Hospitalization)
  Sender: FDA-Public Use
  Company Number: US-AMGEN-QUU388504

PATIENT

DRUGS (18)
  1. ENBREL [Suspect]
     Indication: RHEUMATOID ARTHRITIS
     Dosage: 50 MG, QWK
     Route: 058
  2. ENBREL [Suspect]
     Indication: ANKYLOSING SPONDYLITIS
  3. ASPIRIN [Concomitant]
     Dosage: 81 MG, QD
  4. DEXTROPROPOXYPHENE NAPSILATE W/ ACETAMINOPHEN [Concomitant]
     Dosage: UNK UNK, PRN
  5. ERGOCALCIFEROL [Concomitant]
     Dosage: 50000 IU, QWK
  6. INDOMETHACIN [Concomitant]
     Dosage: 50 MG, BID
  7. ATORVASTATIN CALCIUM [Concomitant]
     Dosage: 40 MG, QD
  8. MULTI-VITAMINS [Concomitant]
     Dosage: UNK UNK, QD
  9. AMLODIPINE BESYLATE [Concomitant]
     Dosage: 5 MG, QD
  10. OMEPRAZOLE [Concomitant]
     Dosage: 20 MG, QD
  11. IRON [Concomitant]
     Dosage: 160 MG, QD
  12. ALPRAZOLAM [Concomitant]
     Dosage: 1 MG, QD
  13. BISOPROLOL FUMARATE [Concomitant]
     Dosage: 5 MG, QD
  14. CITALOPRAM HYDROBROMIDE [Concomitant]
     Dosage: 10 MG, QD
  15. BISOPROLOL FUMARATE [Concomitant]
     Dosage: 5 MG, QD
  16. CLOPIDOGREL BISULFATE [Concomitant]
     Dosage: 75 MG, QD
  17. RAMIPRIL [Concomitant]
     Dosage: UNK UNK, QD
  18. ALENDRONATE SODIUM [Concomitant]
     Dosage: 70 MG, QWK

REACTIONS (29)
  - ANDROGENETIC ALOPECIA [None]
  - BACK PAIN [None]
  - CELLULITIS [None]
  - ENTHESOPATHY [None]
  - FOOT DEFORMITY [None]
  - GAIT DISTURBANCE [None]
  - GRAVITATIONAL OEDEMA [None]
  - HEARING IMPAIRED [None]
  - HYPERLIPIDAEMIA [None]
  - HYPERTENSION [None]
  - INTERVERTEBRAL DISC DEGENERATION [None]
  - KYPHOSIS [None]
  - MUSCLE STRAIN [None]
  - NOCTURIA [None]
  - ONYCHOMYCOSIS [None]
  - OSTEOARTHRITIS [None]
  - OSTEOPENIA [None]
  - ROTATOR CUFF SYNDROME [None]
  - SEPSIS [None]
  - SKIN FISSURES [None]
  - SKIN HYPERTROPHY [None]
  - STAPHYLOCOCCAL INFECTION [None]
  - STASIS DERMATITIS [None]
  - SYNOVITIS [None]
  - TEMPOROMANDIBULAR JOINT SYNDROME [None]
  - TENOSYNOVITIS [None]
  - THERAPEUTIC RESPONSE DECREASED [None]
  - VISUAL IMPAIRMENT [None]
  - WEIGHT INCREASED [None]
